FAERS Safety Report 19353236 (Version 1)
Quarter: 2021Q2

REPORT INFORMATION
  Report Type: Spontaneous
  Country: US (occurrence: US)
  Receive Date: 20210601
  Receipt Date: 20210601
  Transmission Date: 20210717
  Serious: Yes (Hospitalization, Other)
  Sender: FDA-Public Use
  Company Number: US-FRESENIUS MEDICAL CARE RENAL THERAPIES GROUP-FMC-2106-000703

PATIENT
  Age: 87 Year
  Sex: Female
  Weight: 46 kg

DRUGS (14)
  1. PRAMIPEXOL [Concomitant]
     Active Substance: PRAMIPEXOLE
  2. ASPIRIN. [Concomitant]
     Active Substance: ASPIRIN
  3. DESYREL [Concomitant]
     Active Substance: TRAZODONE HYDROCHLORIDE
  4. SIMVASTATIN. [Concomitant]
     Active Substance: SIMVASTATIN
  5. FLUTICASONE. [Concomitant]
     Active Substance: FLUTICASONE
  6. CALCIUM ACETATE. [Concomitant]
     Active Substance: CALCIUM ACETATE
  7. CARVEDILOL. [Concomitant]
     Active Substance: CARVEDILOL
  8. LOPERAMIDE [Concomitant]
     Active Substance: LOPERAMIDE
  9. PROAMATINE [Concomitant]
     Active Substance: MIDODRINE HYDROCHLORIDE
  10. FUROSEMIDE. [Concomitant]
     Active Substance: FUROSEMIDE
  11. AMLODIPINE [Concomitant]
     Active Substance: AMLODIPINE BESYLATE
  12. CLONAZEPAM. [Concomitant]
     Active Substance: CLONAZEPAM
  13. OMEPRAZOLE. [Concomitant]
     Active Substance: OMEPRAZOLE
  14. DELFLEX [Suspect]
     Active Substance: CALCIUM CHLORIDE\DEXTROSE\MAGNESIUM CHLORIDE\SODIUM CHLORIDE\SODIUM LACTATE
     Indication: END STAGE RENAL DISEASE
     Route: 033
     Dates: start: 20210209

REACTIONS (4)
  - Abdominal discomfort [Unknown]
  - Pulmonary oedema [Unknown]
  - Dyspnoea [Unknown]
  - Peritonitis [Unknown]

NARRATIVE: CASE EVENT DATE: 20210507
